FAERS Safety Report 17554560 (Version 2)
Quarter: 2020Q2

REPORT INFORMATION
  Report Type: Spontaneous
  Country: DE (occurrence: DE)
  Receive Date: 20200318
  Receipt Date: 20200508
  Transmission Date: 20200713
  Serious: Yes (Hospitalization)
  Sender: FDA-Public Use
  Company Number: NVSC2020DE071783

PATIENT
  Age: 56 Year
  Sex: Female
  Weight: 83 kg

DRUGS (22)
  1. OXALIPLATIN. [Suspect]
     Active Substance: OXALIPLATIN
     Indication: COLORECTAL CANCER METASTATIC
     Dosage: 186 MG
     Route: 065
     Dates: start: 20190910
  2. AKYNZEO [Concomitant]
     Active Substance: NETUPITANT\PALONOSETRON HYDROCHLORIDE
     Indication: PROPHYLAXIS OF NAUSEA AND VOMITING
     Dosage: 300 MG
     Route: 048
     Dates: start: 20190827
  3. FLUOROURACIL. [Suspect]
     Active Substance: FLUOROURACIL
     Indication: COLORECTAL CANCER METASTATIC
     Dosage: 4836 MG
     Route: 042
     Dates: start: 20190910
  4. FLUOROURACIL. [Suspect]
     Active Substance: FLUOROURACIL
     Dosage: 3500 MG
     Route: 042
     Dates: start: 20191230
  5. DEXAMETHASONE. [Concomitant]
     Active Substance: DEXAMETHASONE
     Dosage: UNK (8 MILLIGRAM, QD AND 16 MILLIGRAM PER CYCLE)
     Route: 065
     Dates: start: 20190827
  6. FLUOROURACIL. [Suspect]
     Active Substance: FLUOROURACIL
     Dosage: 400 MG
     Route: 040
     Dates: start: 20191112
  7. FLUOROURACIL. [Suspect]
     Active Substance: FLUOROURACIL
     Dosage: 2400 MG
     Route: 042
     Dates: start: 20191112
  8. VECTIBIX [Suspect]
     Active Substance: PANITUMUMAB
     Dosage: 250 MG
     Route: 042
     Dates: start: 20191126
  9. OXALIPLATIN. [Suspect]
     Active Substance: OXALIPLATIN
     Dosage: 90 MG
     Route: 065
     Dates: start: 20191112
  10. FLUOROURACIL. [Suspect]
     Active Substance: FLUOROURACIL
     Dosage: 744 MG
     Route: 040
     Dates: start: 20190910
  11. FLUOROURACIL. [Suspect]
     Active Substance: FLUOROURACIL
     Dosage: 550 MG
     Route: 040
     Dates: start: 20191230
  12. CALCIUM FOLINATE [Suspect]
     Active Substance: LEUCOVORIN CALCIUM
     Dosage: 550 MG
     Route: 065
     Dates: start: 20191230
  13. VECTIBIX [Suspect]
     Active Substance: PANITUMUMAB
     Indication: COLORECTAL CANCER METASTATIC
     Dosage: 502 MG
     Route: 042
     Dates: start: 20190910
  14. CALCIUM FOLINATE [Suspect]
     Active Substance: LEUCOVORIN CALCIUM
     Indication: COLORECTAL CANCER METASTATIC
     Dosage: 744 MG
     Route: 065
     Dates: start: 20190910
  15. TAVEGIL [Concomitant]
     Active Substance: CLEMASTINE FUMARATE
     Indication: ALLERGY PROPHYLAXIS
     Dosage: 2 MG, CYCLIC
     Route: 042
     Dates: start: 20190910
  16. ONDANSETRON [Concomitant]
     Active Substance: ONDANSETRON
     Indication: PROPHYLAXIS OF NAUSEA AND VOMITING
     Dosage: 8 MG, PRN
     Route: 048
     Dates: start: 20190910
  17. MACROGOL [Concomitant]
     Active Substance: POLYETHYLENE GLYCOLS
     Indication: CONSTIPATION
     Dosage: 1 BAG, PRN
     Route: 048
     Dates: start: 20190829
  18. CALCIUM FOLINATE [Suspect]
     Active Substance: LEUCOVORIN CALCIUM
     Dosage: 400 MG
     Route: 065
     Dates: start: 20191112
  19. DEXAMETHASONE. [Concomitant]
     Active Substance: DEXAMETHASONE
     Indication: PROPHYLAXIS OF NAUSEA AND VOMITING
     Dosage: UNK {8 MILLIGRAM, QD AND 16 MILLIGRAM PER CYCLE}
     Route: 048
     Dates: start: 20190910
  20. VECTIBIX [Suspect]
     Active Substance: PANITUMUMAB
     Dosage: 125 MG
     Route: 042
     Dates: start: 20200114
  21. GRANISETRON [Concomitant]
     Active Substance: GRANISETRON
     Indication: PROPHYLAXIS OF NAUSEA AND VOMITING
     Dosage: 3 MG, CYCLIC
     Route: 042
     Dates: start: 20190910
  22. GRANISETRON [Concomitant]
     Active Substance: GRANISETRON
     Dosage: 3 MG, CYCLIC
     Route: 042
     Dates: start: 20190827

REACTIONS (2)
  - Diarrhoea [Recovered/Resolved]
  - Constipation [Recovered/Resolved]

NARRATIVE: CASE EVENT DATE: 201910
